FAERS Safety Report 25826280 (Version 1)
Quarter: 2025Q3

REPORT INFORMATION
  Report Type: Spontaneous
  Country: US (occurrence: US)
  Receive Date: 20250919
  Receipt Date: 20250919
  Transmission Date: 20251021
  Serious: Yes (Other)
  Sender: Kenvue
  Company Number: US-KENVUE-20250910940

PATIENT
  Age: 3 Decade
  Sex: Female
  Weight: 129.25 kg

DRUGS (5)
  1. TYLENOL EXTRA STRENGTH [Suspect]
     Active Substance: ACETAMINOPHEN
     Indication: Migraine
     Route: 048
     Dates: start: 2020
  2. AMITRIPTYLINE [Suspect]
     Active Substance: AMITRIPTYLINE
     Indication: Migraine
     Dosage: 10 MILLIGRAM, ONCE A DAY
     Route: 048
     Dates: start: 2024
  3. VITAMIN B6 [Concomitant]
     Active Substance: PYRIDOXINE HYDROCHLORIDE
     Indication: Supplementation therapy
     Route: 048
     Dates: start: 20250109
  4. VITAMINS [Concomitant]
     Active Substance: VITAMINS
     Indication: Supplementation therapy
     Route: 048
     Dates: start: 20241217
  5. VITAMIN D [Concomitant]
     Active Substance: VITAMIN D NOS
     Indication: Supplementation therapy
     Route: 048
     Dates: start: 20250105

REACTIONS (6)
  - Exposure during pregnancy [Unknown]
  - Pulmonary hypertension [Not Recovered/Not Resolved]
  - Gestational hypertension [Not Recovered/Not Resolved]
  - Incorrect dose administered [Unknown]
  - Cardiomegaly [Not Recovered/Not Resolved]
  - Shortened cervix [Recovered/Resolved]

NARRATIVE: CASE EVENT DATE: 20200101
